FAERS Safety Report 16725904 (Version 1)
Quarter: 2019Q3

REPORT INFORMATION
  Report Type: Spontaneous
  Country: US (occurrence: US)
  Receive Date: 20190821
  Receipt Date: 20190821
  Transmission Date: 20191005
  Serious: Yes (Other)
  Sender: FDA-Public Use
  Company Number: US-FRESENIUS KABI-FK201909234

PATIENT
  Age: 62 Day

DRUGS (1)
  1. MIDAZOLAM [Suspect]
     Active Substance: MIDAZOLAM HYDROCHLORIDE
     Indication: RETINOPATHY OF PREMATURITY
     Route: 045

REACTIONS (2)
  - Respiratory distress [Unknown]
  - Product use issue [Unknown]
